FAERS Safety Report 21991956 (Version 2)
Quarter: 2023Q1

REPORT INFORMATION
  Report Type: Spontaneous
  Country: US (occurrence: US)
  Receive Date: 20230214
  Receipt Date: 20230220
  Transmission Date: 20230417
  Serious: Yes (Hospitalization, Other)
  Sender: FDA-Public Use
  Company Number: US-009507513-2302USA001704

PATIENT
  Age: 44 Year
  Sex: Female
  Weight: 65.306 kg

DRUGS (3)
  1. KEYTRUDA [Suspect]
     Active Substance: PEMBROLIZUMAB
     Indication: Cervix carcinoma
     Dosage: 200 MILLIGRAM, Q3W
     Dates: start: 20221115, end: 20230111
  2. TAXOL [Concomitant]
     Active Substance: PACLITAXEL
     Indication: Cervix carcinoma
  3. CARBOPLATIN [Concomitant]
     Active Substance: CARBOPLATIN
     Indication: Cervix carcinoma

REACTIONS (13)
  - Colitis [Recovered/Resolved]
  - Blood thyroid stimulating hormone increased [Recovered/Resolved]
  - Renal failure [Unknown]
  - Central hypothyroidism [Unknown]
  - Fatigue [Unknown]
  - Cough [Unknown]
  - Constipation [Unknown]
  - Haematuria [Unknown]
  - Hypoaesthesia [Unknown]
  - Anxiety [Unknown]
  - Large intestine infection [Unknown]
  - Herpes zoster [Unknown]
  - Anaemia [Unknown]

NARRATIVE: CASE EVENT DATE: 20230202
